FAERS Safety Report 7688446-X (Version None)
Quarter: 2011Q3

REPORT INFORMATION
  Report Type: 
  Country: None (occurrence: None)
  Receive Date: 20110817
  Receipt Date: 20110804
  Transmission Date: 20111222
  Serious: Yes (Other)
  Sender: FDA-Public Use
  Company Number: AU-B.I. PHARMACEUTICALS,INC./RIDGEFIELD-2011-AU-00868AU

PATIENT
  Sex: Male

DRUGS (6)
  1. PRADAXA [Suspect]
     Indication: ATRIAL FIBRILLATION
     Dosage: 220 MG
     Dates: start: 20110718
  2. AVAPRO [Concomitant]
  3. CRESTOR [Concomitant]
  4. NOTEN [Concomitant]
  5. NATRILIX SR [Concomitant]
  6. ARATAC [Concomitant]

REACTIONS (2)
  - COLON CANCER [None]
  - LARGE INTESTINAL HAEMORRHAGE [None]
